FAERS Safety Report 8825443 (Version 3)
Quarter: 2012Q4

REPORT INFORMATION
  Report Type: 
  Country: JP (occurrence: JP)
  Receive Date: 20121004
  Receipt Date: 20121023
  Transmission Date: 20130627
  Serious: Yes (Hospitalization)
  Sender: FDA-Public Use
  Company Number: JP-009507513-1209JPN011970

PATIENT
  Age: 64 Year
  Sex: Male

DRUGS (8)
  1. BONALON [Suspect]
     Indication: OSTEOPOROSIS
     Dosage: 35 mg, qw
     Route: 048
     Dates: start: 20120806, end: 20120917
  2. NESINA [Suspect]
     Indication: DIABETES MELLITUS
     Dosage: 25 mg, qd
     Route: 048
     Dates: start: 20120827, end: 20120921
  3. BACTRAMIN [Suspect]
     Indication: INFECTION PROPHYLAXIS
     Dosage: 4 DF, qd
     Route: 048
     Dates: start: 20120820, end: 20120921
  4. PREDNISOLONE [Concomitant]
     Indication: NEUROMYELITIS OPTICA
     Dosage: 15 mg, qd
     Route: 048
     Dates: start: 20120804
  5. TAKEPRON [Concomitant]
     Indication: GASTRIC ULCER
     Dosage: 15 mg, qd
     Route: 048
     Dates: start: 20120804
  6. URIEF [Concomitant]
     Indication: OSTEOPOROSIS
     Route: 048
  7. UBRETID [Concomitant]
     Indication: OSTEOPOROSIS
     Route: 048
  8. LAXOBERON [Concomitant]
     Indication: CONSTIPATION
     Dosage: 0.67 ml, qd
     Route: 048
     Dates: start: 20120803

REACTIONS (1)
  - Drug eruption [Recovering/Resolving]
